FAERS Safety Report 13250888 (Version 1)
Quarter: 2017Q1

REPORT INFORMATION
  Report Type: Spontaneous
  Country: US (occurrence: US)
  Receive Date: 20170220
  Receipt Date: 20170220
  Transmission Date: 20170428
  Serious: Yes (Hospitalization)
  Sender: FDA-Public Use
  Company Number: US-TEVA-637452USA

PATIENT
  Age: 57 Year
  Sex: Female
  Weight: 91.71 kg

DRUGS (9)
  1. SUTENT [Suspect]
     Active Substance: SUNITINIB MALATE
     Indication: RENAL CELL CARCINOMA STAGE IV
     Dosage: 50 MILLIGRAM DAILY;
     Dates: start: 201504
  2. LEXAPRO [Concomitant]
     Active Substance: ESCITALOPRAM OXALATE
     Dates: start: 201402
  3. COLACE [Concomitant]
     Active Substance: DOCUSATE SODIUM
     Dates: end: 201503
  4. BENADRYL [Concomitant]
     Active Substance: DIPHENHYDRAMINE HYDROCHLORIDE
     Dates: end: 201504
  5. VITAMIN D3 [Concomitant]
     Active Substance: CHOLECALCIFEROL
     Dates: end: 201503
  6. VENTOLIN [Concomitant]
     Active Substance: ALBUTEROL SULFATE
     Dosage: AS NEEDED
  7. BENEFIBER [Concomitant]
     Active Substance: STARCH, WHEAT
     Dates: end: 201308
  8. AMOXICILLIN. [Suspect]
     Active Substance: AMOXICILLIN
     Dosage: 9 MILLIGRAM DAILY; 7 DAYS COURSE
     Dates: start: 201507
  9. SYNTHROID [Concomitant]
     Active Substance: LEVOTHYROXINE SODIUM
     Dates: start: 2010

REACTIONS (4)
  - Psoriasis [Not Recovered/Not Resolved]
  - Diarrhoea [Not Recovered/Not Resolved]
  - Pruritus [Not Recovered/Not Resolved]
  - Vulvovaginal burning sensation [Not Recovered/Not Resolved]

NARRATIVE: CASE EVENT DATE: 201508
